FAERS Safety Report 6570237-4 (Version None)
Quarter: 2010Q1

REPORT INFORMATION
  Report Type: 
  Country: None (occurrence: None)
  Receive Date: 20100204
  Receipt Date: 20100125
  Transmission Date: 20100710
  Serious: Yes (Other)
  Sender: FDA-Public Use
  Company Number: US-JNJFOC-20100200407

PATIENT

DRUGS (2)
  1. TYLENOL (CAPLET) [Suspect]
     Route: 064
  2. TYLENOL (CAPLET) [Suspect]
     Indication: DRUG EXPOSURE DURING PREGNANCY
     Dosage: 325 TO 650 MG
     Route: 064

REACTIONS (2)
  - PREMATURE BABY [None]
  - PRODUCT QUALITY ISSUE [None]
